FAERS Safety Report 8194316-3 (Version None)
Quarter: 2012Q1

REPORT INFORMATION
  Report Type: 
  Country: None (occurrence: None)
  Receive Date: 20120308
  Receipt Date: 20120307
  Transmission Date: 20120608
  Serious: No
  Sender: FDA-Public Use
  Company Number: US-PFIZER INC-2012061559

PATIENT
  Sex: Female
  Weight: 51.247 kg

DRUGS (3)
  1. CHANTIX [Suspect]
     Indication: SMOKING CESSATION THERAPY
     Dosage: 0.5 MG, 1X/DAY
     Dates: start: 20080101
  2. CHANTIX [Suspect]
     Dosage: UNK
  3. CHANTIX [Suspect]
     Dosage: 0.5 MG, 1X/DAY
     Dates: start: 20111101

REACTIONS (4)
  - DYSGEUSIA [None]
  - THERAPEUTIC RESPONSE UNEXPECTED [None]
  - ALCOHOL USE [None]
  - WEIGHT INCREASED [None]
